FAERS Safety Report 6718105-9 (Version None)
Quarter: 2010Q2

REPORT INFORMATION
  Report Type: 
  Country: None (occurrence: None)
  Receive Date: 20100510
  Receipt Date: 20100505
  Transmission Date: 20101027
  Serious: Yes (Hospitalization)
  Sender: FDA-Public Use
  Company Number: A0854786A

PATIENT
  Sex: Male
  Weight: 75 kg

DRUGS (3)
  1. SERETIDE [Suspect]
     Indication: ASTHMA
     Route: 055
  2. CLENIL [Concomitant]
     Dosage: 1PUFF PER DAY
     Route: 055
     Dates: start: 20000101
  3. AEROLIN [Concomitant]
     Dosage: 1PUFF AS REQUIRED
     Route: 055
     Dates: start: 19750101

REACTIONS (6)
  - ASTHMA [None]
  - COUGH [None]
  - DRUG ADMINISTRATION ERROR [None]
  - DRUG INEFFECTIVE [None]
  - PRODUCT QUALITY ISSUE [None]
  - RESPIRATORY TRACT INFECTION [None]
